FAERS Safety Report 7358044-6 (Version None)
Quarter: 2011Q1

REPORT INFORMATION
  Report Type: 
  Country: None (occurrence: None)
  Receive Date: 20110317
  Receipt Date: 20110310
  Transmission Date: 20110831
  Serious: Yes (Hospitalization, Other)
  Sender: FDA-Public Use
  Company Number: US-TEVA-267715USA

PATIENT
  Sex: Male

DRUGS (2)
  1. METHYLPHENIDATE HCL [Concomitant]
  2. CLARAVIS [Suspect]
     Indication: ACNE CYSTIC
     Route: 048
     Dates: start: 20101103, end: 20110101

REACTIONS (2)
  - SUICIDAL IDEATION [None]
  - DEPRESSION [None]
